FAERS Safety Report 10890999 (Version 1)
Quarter: 2015Q1

REPORT INFORMATION
  Report Type: Spontaneous
  Country: BR (occurrence: BR)
  Receive Date: 20150305
  Receipt Date: 20150305
  Transmission Date: 20150721
  Serious: Yes (Other)
  Sender: FDA-Public Use
  Company Number: BR-SHIRE-BR201501643

PATIENT
  Age: 3 Year
  Sex: Male
  Weight: 20 kg

DRUGS (1)
  1. ELAPRASE [Suspect]
     Active Substance: IDURSULFASE
     Indication: MUCOPOLYSACCHARIDOSIS II
     Dosage: UNK, UNKNOWN
     Route: 041
     Dates: start: 20140910

REACTIONS (8)
  - Infusion related reaction [Recovered/Resolved]
  - Wheezing [Recovered/Resolved]
  - Hyperaemia [Recovered/Resolved]
  - Drug dose omission [Unknown]
  - Swelling face [Recovered/Resolved]
  - Throat tightness [Recovered/Resolved]
  - Tachypnoea [Recovered/Resolved]
  - Cough [Recovered/Resolved]

NARRATIVE: CASE EVENT DATE: 20150123
